FAERS Safety Report 8742180 (Version 2)
Quarter: 2012Q4

REPORT INFORMATION
  Report Type: 
  Country: HU (occurrence: HU)
  Receive Date: 20120824
  Receipt Date: 20120928
  Transmission Date: 20130627
  Serious: Yes (Hospitalization, Other)
  Sender: FDA-Public Use
  Company Number: PHHY2012HU071993

PATIENT
  Age: 53 Year
  Sex: Female

DRUGS (7)
  1. CARBAMAZEPINE [Suspect]
     Dosage: 200 mg, QD
  2. QUETIAPINE [Suspect]
     Dosage: 200 mg, QD
  3. LITHIUM CARBONATE [Suspect]
     Dosage: 250 mg, BID
  4. LITHIUM CARBONATE [Suspect]
     Dosage: 500 mg, BID
  5. ATORVASTATIN [Concomitant]
     Dosage: 40 mg, UNK
  6. LEVOTHYROXINE [Concomitant]
     Dosage: 150 ug, UNK
  7. CINOLAZEPAM [Concomitant]
     Dosage: 40 mg, UNK

REACTIONS (10)
  - Atrioventricular block second degree [Recovered/Resolved]
  - Sinus bradycardia [Recovered/Resolved]
  - Nodal rhythm [Recovered/Resolved]
  - Tremor [Recovered/Resolved]
  - Fatigue [Recovered/Resolved]
  - Left ventricular hypertrophy [Recovered/Resolved]
  - Heart valve incompetence [Recovered/Resolved]
  - Left atrial dilatation [Recovered/Resolved]
  - Sinus arrest [None]
  - Cardiotoxicity [None]
